FAERS Safety Report 5136440-5 (Version None)
Quarter: 2006Q4

REPORT INFORMATION
  Report Type: 
  Country: None (occurrence: None)
  Receive Date: 20061027
  Receipt Date: 20060405
  Transmission Date: 20070319
  Serious: No
  Sender: FDA-Public Use
  Company Number: US-BRISTOL-MYERS SQUIBB COMPANY-13338132

PATIENT
  Age: 32 Year
  Sex: Female
  Weight: 63 kg

DRUGS (1)
  1. KENALOG-40 [Suspect]
     Dates: start: 20060103, end: 20060124

REACTIONS (2)
  - INJECTION SITE ATROPHY [None]
  - SKIN HYPOPIGMENTATION [None]
